FAERS Safety Report 7754013-2 (Version None)
Quarter: 2011Q3

REPORT INFORMATION
  Report Type: 
  Country: None (occurrence: None)
  Receive Date: 20110915
  Receipt Date: 20110411
  Transmission Date: 20111222
  Serious: No
  Sender: FDA-Public Use
  Company Number: US-BAYER-2011-024549

PATIENT
  Sex: Female

DRUGS (1)
  1. MIRENA [Suspect]
     Indication: CONTRACEPTION
     Dosage: 20 ?G/D, UNK
     Route: 015
     Dates: start: 20110215, end: 20110311

REACTIONS (4)
  - ADVERSE EVENT [None]
  - VAGINAL HAEMORRHAGE [None]
  - POLYMENORRHOEA [None]
  - ABDOMINAL PAIN [None]
